FAERS Safety Report 5098635-9 (Version None)
Quarter: 2006Q3

REPORT INFORMATION
  Report Type: 
  Country: None (occurrence: None)
  Receive Date: 20060906
  Receipt Date: 20060321
  Transmission Date: 20061208
  Serious: No
  Sender: FDA-Public Use
  Company Number: US-GLAXOSMITHKLINE-A0598408A

PATIENT
  Age: 69 Year
  Sex: Female
  Weight: 82.3 kg

DRUGS (14)
  1. REQUIP [Suspect]
     Indication: RESTLESS LEGS SYNDROME
     Dosage: 1MG PER DAY
     Route: 048
     Dates: start: 20060307
  2. TOPROL-XL [Concomitant]
  3. PLAVIX [Concomitant]
  4. MOBIC [Concomitant]
  5. ALTACE [Concomitant]
  6. POTASSIUM [Concomitant]
  7. GLYBURIDE [Concomitant]
  8. CRESTOR [Concomitant]
  9. ARICEPT [Concomitant]
  10. METFORMIN HCL [Concomitant]
  11. FOSAMAX [Concomitant]
  12. ISOSORBIDE DINITRATE [Concomitant]
  13. FERROUS SULFATE TAB [Concomitant]
  14. AMILORIDE [Concomitant]

REACTIONS (2)
  - AMNESIA [None]
  - DRUG INEFFECTIVE [None]
